FAERS Safety Report 22071931 (Version 1)
Quarter: 2023Q1

REPORT INFORMATION
  Report Type: Spontaneous
  Country: US (occurrence: US)
  Receive Date: 20230307
  Receipt Date: 20230307
  Transmission Date: 20230417
  Serious: No
  Sender: FDA-Public Use
  Company Number: US-EIGER BIOPHARMACEUTICALS-EIG-2023-000003

PATIENT
  Sex: Male

DRUGS (2)
  1. ZOKINVY [Suspect]
     Active Substance: LONAFARNIB
     Indication: Progeria
     Dosage: 1 CAPSULE IN THE MORNING
     Route: 048
     Dates: start: 201101
  2. ZOKINVY [Suspect]
     Active Substance: LONAFARNIB
     Indication: Progeria
     Dosage: ONE CAPSULE IN THE MORNING AND TWO IN THE EVENING
     Route: 048
     Dates: start: 201101

REACTIONS (1)
  - Insomnia [Unknown]
